FAERS Safety Report 7203932-4 (Version None)
Quarter: 2010Q4

REPORT INFORMATION
  Report Type: 
  Country: None (occurrence: None)
  Receive Date: 20101230
  Receipt Date: 20101213
  Transmission Date: 20110411
  Serious: No
  Sender: FDA-Public Use
  Company Number: US-PFIZER INC-2010172421

PATIENT
  Age: 75 Year
  Sex: Male
  Weight: 86.168 kg

DRUGS (3)
  1. ADVIL [Suspect]
     Indication: BACK PAIN
     Dosage: 2 TABLETS, BID TO TID
     Route: 048
     Dates: start: 20100601
  2. ADVIL [Suspect]
     Indication: MUSCLE INJURY
  3. ATENOLOL [Concomitant]

REACTIONS (1)
  - URTICARIA [None]
